FAERS Safety Report 7080440-5 (Version None)
Quarter: 2010Q4

REPORT INFORMATION
  Report Type: 
  Country: None (occurrence: None)
  Receive Date: 20101103
  Receipt Date: 20101022
  Transmission Date: 20110411
  Serious: Yes (Death)
  Sender: FDA-Public Use
  Company Number: AT-BAYER-201043279GPV

PATIENT
  Age: 19 Year
  Sex: Female

DRUGS (2)
  1. YASMIN [Suspect]
     Dates: start: 20060501, end: 20090201
  2. YASMIN [Suspect]
     Dates: start: 20090401

REACTIONS (3)
  - CARDIAC FAILURE [None]
  - PULMONARY EMBOLISM [None]
  - THROMBOSIS [None]
